FAERS Safety Report 6503902-5 (Version None)
Quarter: 2009Q4

REPORT INFORMATION
  Report Type: 
  Country: None (occurrence: None)
  Receive Date: 20091217
  Receipt Date: 20091207
  Transmission Date: 20100525
  Serious: Yes (Other)
  Sender: FDA-Public Use
  Company Number: US-PFIZER INC-2009307205

PATIENT
  Sex: Female
  Weight: 75.296 kg

DRUGS (1)
  1. CELEBREX [Suspect]
     Indication: ARTHRITIS
     Dosage: 200 MG, UNK

REACTIONS (1)
  - DRUG DEPENDENCE [None]
